FAERS Safety Report 16951758 (Version 2)
Quarter: 2020Q4

REPORT INFORMATION
  Report Type: Spontaneous
  Country: BR (occurrence: BR)
  Receive Date: 20191023
  Receipt Date: 20201022
  Transmission Date: 20210113
  Serious: Yes (Death, Other)
  Sender: FDA-Public Use
  Company Number: BR-SUN PHARMACEUTICAL INDUSTRIES LTD-2019R1-224973

PATIENT
  Age: 42 Year
  Sex: Male

DRUGS (8)
  1. PACLITAXEL. [Suspect]
     Active Substance: PACLITAXEL
     Indication: SQUAMOUS CELL CARCINOMA
     Dosage: 45 MG/M2
     Route: 065
     Dates: start: 201705, end: 201707
  2. CISPLATIN. [Suspect]
     Active Substance: CISPLATIN
     Dosage: 150 MG/M2
     Route: 065
  3. DOCETAXEL. [Suspect]
     Active Substance: DOCETAXEL
     Indication: SQUAMOUS CELL CARCINOMA
     Dosage: 75 MG/M2 AT DAY 1
     Route: 065
     Dates: start: 201701, end: 201704
  4. CARBOPLATIN. [Suspect]
     Active Substance: CARBOPLATIN
     Indication: SQUAMOUS CELL CARCINOMA
     Dosage: 1.5 AREA UNDER THE CURVE
     Route: 065
     Dates: start: 201705, end: 201707
  5. CISPLATIN. [Suspect]
     Active Substance: CISPLATIN
     Indication: SQUAMOUS CELL CARCINOMA
     Dosage: 100 MG/M2 AT DAY 1
     Route: 065
     Dates: start: 201701, end: 201704
  6. FLUOROURACIL. [Suspect]
     Active Substance: FLUOROURACIL
     Indication: SQUAMOUS CELL CARCINOMA
     Dosage: 1000 MG/M2 PER DAY AT DAY 1 TO DAY 4
     Route: 065
     Dates: start: 201701, end: 201704
  7. FLUOROURACIL. [Suspect]
     Active Substance: FLUOROURACIL
     Dosage: 1000 MG/M2, OR SIX CYCLES EVERY 3 WEEKS
     Route: 065
     Dates: start: 201701, end: 201704
  8. CETUXIMAB. [Suspect]
     Active Substance: CETUXIMAB
     Indication: SQUAMOUS CELL CARCINOMA
     Dosage: 400 MG/M2
     Route: 065
     Dates: start: 201705, end: 201707

REACTIONS (4)
  - Therapeutic response decreased [Unknown]
  - Metastatic neoplasm [Fatal]
  - Myelosuppression [Unknown]
  - Nausea [Unknown]
